FAERS Safety Report 5511625-4 (Version None)
Quarter: 2007Q4

REPORT INFORMATION
  Report Type: 
  Country: None (occurrence: None)
  Receive Date: 20071109
  Receipt Date: 20071030
  Transmission Date: 20080405
  Serious: Yes (Life-Threatening, Disabling, Other)
  Sender: FDA-Public Use
  Company Number: US-PFIZER INC-2007080636

PATIENT
  Sex: Female
  Weight: 45.4 kg

DRUGS (2)
  1. LIPITOR [Suspect]
     Indication: BLOOD CHOLESTEROL ABNORMAL
     Dosage: DAILY DOSE:20MG
     Route: 048
     Dates: start: 20071015, end: 20071001
  2. LIPITOR [Suspect]
     Indication: BLOOD TRIGLYCERIDES

REACTIONS (3)
  - FEELING ABNORMAL [None]
  - MUSCLE TIGHTNESS [None]
  - PALPITATIONS [None]
